FAERS Safety Report 19486113 (Version 1)
Quarter: 2021Q3

REPORT INFORMATION
  Report Type: Spontaneous
  Country: US (occurrence: US)
  Receive Date: 20210702
  Receipt Date: 20210702
  Transmission Date: 20211014
  Serious: Yes (Hospitalization)
  Sender: FDA-Public Use
  Company Number: US-INDICUS PHARMA-000796

PATIENT
  Age: 61 Year
  Sex: Female

DRUGS (7)
  1. INVEGA [Concomitant]
     Active Substance: PALIPERIDONE
     Dosage: INVEGA SUSTENNA 156 MG/ML IM MONTHLY
     Route: 030
  2. INVEGA [Concomitant]
     Active Substance: PALIPERIDONE
     Dosage: INVEGA SUSTENNA 156 MG/ML IM MONTHLY
     Route: 048
  3. METFORMIN [Suspect]
     Active Substance: METFORMIN HYDROCHLORIDE
     Indication: TYPE 2 DIABETES MELLITUS
     Dosage: 850 MG P.O. BID
     Route: 048
  4. ATORVASTATIN [Concomitant]
     Active Substance: ATORVASTATIN
     Dosage: 20 MG P.O. DAILY
     Route: 048
  5. LEVEMIR [Concomitant]
     Active Substance: INSULIN DETEMIR
     Dosage: 100 UNITS/ML (SUBCUTANEOUS SOLUTION 10 UNITS QAM)
  6. LISINOPRIL. [Concomitant]
     Active Substance: LISINOPRIL
     Dosage: 20 MG P.O. DAILY
     Route: 048
  7. HYDROXYZINE [Concomitant]
     Active Substance: HYDROXYZINE HYDROCHLORIDE
     Dosage: 50 MG P.O. BID
     Route: 048

REACTIONS (2)
  - Toxicity to various agents [Unknown]
  - Metabolic acidosis [Recovered/Resolved]
